FAERS Safety Report 5139381-2 (Version None)
Quarter: 2006Q4

REPORT INFORMATION
  Report Type: 
  Country: None (occurrence: None)
  Receive Date: 20061024
  Receipt Date: 20061006
  Transmission Date: 20070319
  Serious: Yes (Hospitalization, Other)
  Sender: FDA-Public Use
  Company Number: 2006-07-0663

PATIENT
  Age: 63 Year
  Sex: Female
  Weight: 78.4723 kg

DRUGS (14)
  1. PEG-INTRON [Suspect]
     Indication: HEPATITIS C
     Dosage: UNK, QW, SC
     Route: 058
     Dates: start: 20060607, end: 20060809
  2. REBETOL [Suspect]
     Indication: HEPATITIS C
     Dosage: 1000 MG, QD; PO
     Route: 048
     Dates: start: 20060607, end: 20060809
  3. AMITRIPTYLINE HYDROCHLORIDE [Concomitant]
  4. BUSPAR [Concomitant]
  5. DOXAZOSIN MESYLATE [Concomitant]
  6. ESTRATEST [Concomitant]
  7. HYZAAR [Concomitant]
  8. LEXAPRO [Concomitant]
  9. LORATADINE (S-P) [Concomitant]
  10. MOBIC [Concomitant]
  11. CELEBREX (PREV.) [Concomitant]
  12. MECLIZINE [Concomitant]
  13. ZOLOFT [Concomitant]
  14. LEVAQUIN [Concomitant]

REACTIONS (19)
  - ANAEMIA [None]
  - ANKLE FRACTURE [None]
  - ASTHENIA [None]
  - BODY TEMPERATURE INCREASED [None]
  - BONE MARROW FAILURE [None]
  - DEHYDRATION [None]
  - DEPRESSION [None]
  - DISTURBANCE IN ATTENTION [None]
  - DIZZINESS [None]
  - DYSGEUSIA [None]
  - DYSPHAGIA [None]
  - FALL [None]
  - FULL BLOOD COUNT DECREASED [None]
  - LOSS OF CONSCIOUSNESS [None]
  - NAUSEA [None]
  - PHARYNGOLARYNGEAL PAIN [None]
  - PRESYNCOPE [None]
  - VISUAL DISTURBANCE [None]
  - WEIGHT DECREASED [None]
